FAERS Safety Report 4512145-6 (Version None)
Quarter: 2004Q4

REPORT INFORMATION
  Report Type: 
  Country: None (occurrence: None)
  Receive Date: 20041129
  Receipt Date: 20040429
  Transmission Date: 20050328
  Serious: No
  Sender: FDA-Public Use
  Company Number: US-GLAXOSMITHKLINE-A0508955A

PATIENT
  Age: 87 Year
  Sex: Female

DRUGS (1)
  1. LANOXIN [Suspect]
     Indication: ILL-DEFINED DISORDER
     Dosage: 125MCG UNKNOWN
     Route: 048

REACTIONS (1)
  - FATIGUE [None]
